FAERS Safety Report 4924042-2 (Version None)
Quarter: 2006Q1

REPORT INFORMATION
  Report Type: 
  Country: None (occurrence: None)
  Receive Date: 20060227
  Receipt Date: 20031125
  Transmission Date: 20060701
  Serious: No
  Sender: FDA-Public Use
  Company Number: US-GLAXOSMITHKLINE-A0441527A

PATIENT
  Age: 33 Year
  Sex: Female

DRUGS (4)
  1. WELLBUTRIN XL [Suspect]
     Indication: DRUG USE FOR UNKNOWN INDICATION
     Dosage: 300MG PER DAY
     Route: 048
     Dates: start: 20051111
  2. WELLBUTRIN SR [Suspect]
     Indication: PREMENSTRUAL SYNDROME
     Dosage: 150MG PER DAY
     Route: 048
     Dates: start: 20031120
  3. EFFEXOR XR [Concomitant]
     Indication: PREMENSTRUAL SYNDROME
     Route: 065
     Dates: start: 20031101
  4. KARIVA [Concomitant]

REACTIONS (11)
  - AGITATION [None]
  - BURNING SENSATION [None]
  - DIZZINESS [None]
  - EMOTIONAL DISORDER [None]
  - ERYTHEMA [None]
  - FEELING ABNORMAL [None]
  - FLUSHING [None]
  - HEADACHE [None]
  - HOT FLUSH [None]
  - NAUSEA [None]
  - NECK PAIN [None]
